FAERS Safety Report 9138228 (Version 1)
Quarter: 2013Q1

REPORT INFORMATION
  Report Type: Report from Study
  Country: US (occurrence: US)
  Receive Date: 20130305
  Receipt Date: 20130305
  Transmission Date: 20140127
  Serious: Yes (Other)
  Sender: FDA-Public Use
  Company Number: US-ABBOTT-13P-163-1054947-00

PATIENT
  Age: 58 Year
  Sex: Female

DRUGS (16)
  1. HUMIRA [Suspect]
     Indication: RHEUMATOID ARTHRITIS
     Dates: start: 201211, end: 20121208
  2. METHOTREXATE [Concomitant]
     Indication: RHEUMATOID ARTHRITIS
     Dosage: 2.5 MG X 6 WEEKLY
  3. SYNTHROID [Concomitant]
     Indication: HYPOTHYROIDISM
     Dosage: 112 MCG DAILY
  4. OMEPRAZOLE [Concomitant]
     Indication: GASTROOESOPHAGEAL REFLUX DISEASE
     Dosage: 20 MG DAILY
  5. GABAPENTIN [Concomitant]
     Indication: OSTEOPOROSIS
  6. PROLYRIA [Concomitant]
     Indication: OSTEOPOROSIS
     Route: 058
  7. FOLIC ACID [Concomitant]
     Indication: VITAMIN SUPPLEMENTATION
     Dosage: 1 MG DAILY
  8. HYDROCODONE [Concomitant]
     Indication: FIBROMYALGIA
     Dosage: 5/325 MG AS NEEDED
  9. XANAX [Concomitant]
     Indication: ANXIETY DISORDER
     Dosage: 0.5 MG DAILY
  10. GENERIC ZOLOFT [Concomitant]
     Indication: DEPRESSION
     Dosage: 50 MG DAILY
  11. TRAZODONE [Concomitant]
     Indication: INSOMNIA
     Dosage: AT BEDTIME
  12. OMEGA 3 [Concomitant]
     Indication: SUPPLEMENTATION THERAPY
     Dosage: DAILY
  13. CALCIUM WITH VITAMIN D [Concomitant]
     Indication: MINERAL SUPPLEMENTATION
     Dosage: 600 MG DAILY
  14. VITAMIN B12 [Concomitant]
     Indication: VITAMIN SUPPLEMENTATION
     Dosage: 1000 MCG DAILY
  15. VITAMIN C [Concomitant]
     Indication: VITAMIN SUPPLEMENTATION
     Dosage: 100 MG DAILY
  16. D 3 [Concomitant]
     Indication: VITAMIN SUPPLEMENTATION
     Dosage: 2000 IU DAILY

REACTIONS (5)
  - Bone disorder [Recovered/Resolved]
  - Impaired healing [Unknown]
  - Wound [Unknown]
  - Drug ineffective [Unknown]
  - Arthralgia [Unknown]
